FAERS Safety Report 9313996 (Version 1)
Quarter: 2013Q2

REPORT INFORMATION
  Report Type: Spontaneous
  Country: US (occurrence: None)
  Receive Date: 20130524
  Receipt Date: 20130524
  Transmission Date: 20140414
  Serious: No
  Sender: FDA-Public Use
  Company Number: None

PATIENT
  Age: 43 Year
  Sex: Female
  Weight: 55.79 kg

DRUGS (2)
  1. LEVAQUIN [Suspect]
     Indication: CHRONIC SINUSITIS
     Route: 048
     Dates: start: 20041214, end: 20050101
  2. PREDNISONE [Suspect]
     Indication: CHRONIC SINUSITIS
     Dosage: 40 MG TAPER, ONCE A DAY, PO
     Route: 048
     Dates: start: 20041214, end: 20041224

REACTIONS (2)
  - Tendon rupture [None]
  - Memory impairment [None]
